FAERS Safety Report 6099928-9 (Version None)
Quarter: 2009Q1

REPORT INFORMATION
  Report Type: 
  Country: None (occurrence: None)
  Receive Date: 20090226
  Receipt Date: 20090223
  Transmission Date: 20090719
  Serious: Yes (Other)
  Sender: FDA-Public Use
  Company Number: GXKR2009DE02200

PATIENT
  Sex: Female

DRUGS (5)
  1. LOPEDIUM (NGX) (LOPERAMIDE) CAPSULE [Suspect]
     Dosage: ORAL
     Route: 048
  2. FENTANYL-100 [Concomitant]
  3. OXYCODONE HCL [Concomitant]
  4. DRONABINOL [Concomitant]
  5. FLUPIRTINE (FLUPIRTINE) [Concomitant]

REACTIONS (1)
  - INTENTIONAL DRUG MISUSE [None]
